FAERS Safety Report 4776442-1 (Version None)
Quarter: 2005Q3

REPORT INFORMATION
  Report Type: 
  Country: None (occurrence: None)
  Receive Date: 20050922
  Receipt Date: 20041214
  Transmission Date: 20060218
  Serious: Yes (Death, Hospitalization)
  Sender: FDA-Public Use
  Company Number: US-MERCK-0412USA01861

PATIENT
  Age: 76 Year
  Sex: Male
  Weight: 80 kg

DRUGS (11)
  1. VIOXX [Suspect]
     Indication: OSTEOARTHRITIS
     Route: 048
     Dates: start: 20000119, end: 20040706
  2. VIOXX [Suspect]
     Route: 048
     Dates: start: 20000119, end: 20040706
  3. COREG [Concomitant]
     Route: 065
  4. LIPITOR [Concomitant]
     Route: 065
  5. PRILOSEC [Concomitant]
     Indication: DYSPEPSIA
     Route: 065
  6. ALTACE [Concomitant]
     Route: 065
  7. TIMOPTIC [Concomitant]
     Indication: DRY EYE
     Route: 065
  8. LASIX [Concomitant]
     Route: 065
  9. LUPRON [Concomitant]
     Indication: PROSTATE CANCER
     Route: 065
  10. LANOXIN [Concomitant]
     Route: 065
  11. NORVASC [Concomitant]
     Route: 065

REACTIONS (2)
  - CARDIAC DISORDER [None]
  - MYOCARDIAL INFARCTION [None]
